FAERS Safety Report 7904606-4 (Version None)
Quarter: 2011Q4

REPORT INFORMATION
  Report Type: 
  Country: None (occurrence: None)
  Receive Date: 20111109
  Receipt Date: 20110307
  Transmission Date: 20120403
  Serious: Yes (Other)
  Sender: FDA-Public Use
  Company Number: US-GLAXOSMITHKLINE-A0917628A

PATIENT
  Age: 70 Year
  Sex: Male

DRUGS (1)
  1. ROSIGLITAZONE MALEATE [Suspect]
     Indication: DIABETES MELLITUS
     Route: 048
     Dates: end: 20081201

REACTIONS (8)
  - PROSTATIC DISORDER [None]
  - RENAL DISORDER [None]
  - CARDIAC FAILURE [None]
  - DYSPNOEA [None]
  - ABDOMINAL PAIN UPPER [None]
  - CEREBROVASCULAR ACCIDENT [None]
  - GASTRIC DISORDER [None]
  - HYPERTENSION [None]
